FAERS Safety Report 8596222-9 (Version None)
Quarter: 2012Q3

REPORT INFORMATION
  Report Type: 
  Country: None (occurrence: None)
  Receive Date: 20120815
  Receipt Date: 20120809
  Transmission Date: 20120928
  Serious: Yes (Other)
  Sender: FDA-Public Use
  Company Number: JP-GLAXOSMITHKLINE-B0822381A

PATIENT
  Sex: Female

DRUGS (2)
  1. DEPAKENE [Concomitant]
     Route: 048
  2. FLUTICASONE PROPIONATE [Suspect]
     Indication: PRODUCT USED FOR UNKNOWN INDICATION
     Route: 055
     Dates: start: 20120101

REACTIONS (1)
  - EPILEPSY [None]
